FAERS Safety Report 7764035-3 (Version None)
Quarter: 2011Q3

REPORT INFORMATION
  Report Type: 
  Country: None (occurrence: None)
  Receive Date: 20110921
  Receipt Date: 20110916
  Transmission Date: 20111222
  Serious: No
  Sender: FDA-Public Use
  Company Number: US-PFIZER INC-2011189832

PATIENT
  Sex: Female
  Weight: 47.619 kg

DRUGS (2)
  1. ADVIL COLD AND SINUS [Suspect]
     Indication: HEADACHE
  2. ADVIL COLD AND SINUS [Suspect]
     Indication: NASAL CONGESTION
     Dosage: 200/30 MG, AS NEEDED
     Route: 048
     Dates: start: 20110814, end: 20110817

REACTIONS (2)
  - DRUG INEFFECTIVE [None]
  - SOMNOLENCE [None]
